FAERS Safety Report 23905398 (Version 1)
Quarter: 2024Q2

REPORT INFORMATION
  Report Type: Other
  Country: US (occurrence: US)
  Receive Date: 20240527
  Receipt Date: 20240527
  Transmission Date: 20240716
  Serious: No
  Sender: FDA-Public Use
  Company Number: US-SCIEGENP-2024SCSPO00274

PATIENT

DRUGS (1)
  1. BUPROPION HYDROCHLORIDE [Suspect]
     Active Substance: BUPROPION HYDROCHLORIDE
     Indication: Product used for unknown indication
     Route: 065

REACTIONS (8)
  - Lethargy [Unknown]
  - Depressed mood [Unknown]
  - Mood altered [Unknown]
  - Apathy [Unknown]
  - Therapeutic product effect decreased [Unknown]
  - Product formulation issue [Unknown]
  - Product substitution issue [Unknown]
  - Product odour abnormal [Unknown]
